FAERS Safety Report 13075312 (Version 4)
Quarter: 2018Q1

REPORT INFORMATION
  Report Type: Spontaneous
  Country: DE (occurrence: DE)
  Receive Date: 20161230
  Receipt Date: 20180312
  Transmission Date: 20180508
  Serious: Yes (Death, Other)
  Sender: FDA-Public Use
  Company Number: DE-AUROBINDO-AUR-APL-2016-15992

PATIENT
  Age: 75 Year
  Sex: Male

DRUGS (8)
  1. HALDOL [Suspect]
     Active Substance: HALOPERIDOL
     Indication: PRODUCT USED FOR UNKNOWN INDICATION
     Dosage: 4 MG, FOUR TIMES/DAY
     Route: 065
     Dates: start: 201607, end: 20160723
  2. RISPERIDONE. [Concomitant]
     Active Substance: RISPERIDONE
     Indication: PRODUCT USED FOR UNKNOWN INDICATION
     Route: 065
  3. OLANZAPINE. [Suspect]
     Active Substance: OLANZAPINE
     Dosage: `
     Route: 065
     Dates: start: 20160723, end: 20160915
  4. GLIANIMON [Concomitant]
     Active Substance: BENPERIDOL
     Indication: PRODUCT USED FOR UNKNOWN INDICATION
     Dosage: UNK
     Dates: start: 201603, end: 20160414
  5. LORAZEPAM. [Concomitant]
     Active Substance: LORAZEPAM
     Indication: PRODUCT USED FOR UNKNOWN INDICATION
     Dosage: UNK
     Route: 065
     Dates: start: 201603, end: 20160414
  6. PIPAMPERONE [Concomitant]
     Active Substance: PIPAMPERONE
     Indication: PRODUCT USED FOR UNKNOWN INDICATION
     Dosage: 20-20-40
     Route: 065
  7. OLANZAPINE. [Suspect]
     Active Substance: OLANZAPINE
     Indication: PRODUCT USED FOR UNKNOWN INDICATION
     Dosage: 10 MG, ONCE A DAY
     Route: 065
     Dates: start: 201604, end: 20160528
  8. QUETIAPINE. [Concomitant]
     Active Substance: QUETIAPINE
     Indication: PRODUCT USED FOR UNKNOWN INDICATION
     Route: 065

REACTIONS (14)
  - Bradyphrenia [Fatal]
  - Dry mouth [Fatal]
  - Gait disturbance [Fatal]
  - Body temperature increased [Fatal]
  - Sepsis [Fatal]
  - Cerebellar syndrome [Fatal]
  - Dysphagia [Fatal]
  - Eye movement disorder [Fatal]
  - Cough [Fatal]
  - Pneumonia aspiration [Fatal]
  - Dysarthria [Fatal]
  - Muscle rigidity [Fatal]
  - General physical health deterioration [Fatal]
  - Neuroleptic malignant syndrome [Fatal]

NARRATIVE: CASE EVENT DATE: 20160414
